FAERS Safety Report 12253423 (Version 1)
Quarter: 2016Q2

REPORT INFORMATION
  Report Type: Report from Study
  Country: DE (occurrence: DE)
  Receive Date: 20160411
  Receipt Date: 20160411
  Transmission Date: 20160815
  Serious: Yes (Hospitalization)
  Sender: FDA-Public Use
  Company Number: DE-IPSEN BIOPHARMACEUTICALS, INC.-2016-02986

PATIENT
  Age: 25 Year
  Sex: Female
  Weight: 100 kg

DRUGS (1)
  1. SOMATULINE AUTOGEL [Suspect]
     Active Substance: LANREOTIDE ACETATE
     Indication: ACROMEGALY
     Dosage: 120
     Route: 058
     Dates: start: 20150615

REACTIONS (8)
  - Cholestasis [Not Recovered/Not Resolved]
  - Hernia [Unknown]
  - Steatohepatitis [Not Recovered/Not Resolved]
  - Splenomegaly [Not Recovered/Not Resolved]
  - Hypersplenism [Not Recovered/Not Resolved]
  - Erosive oesophagitis [Unknown]
  - Pancytopenia [Not Recovered/Not Resolved]
  - Gastritis [Unknown]

NARRATIVE: CASE EVENT DATE: 20160224
